FAERS Safety Report 6817613-X (Version None)
Quarter: 2010Q3

REPORT INFORMATION
  Report Type: 
  Country: None (occurrence: None)
  Receive Date: 20100706
  Receipt Date: 20100623
  Transmission Date: 20110219
  Serious: Yes (Other)
  Sender: FDA-Public Use
  Company Number: PHEH2008US05591

PATIENT
  Sex: Female
  Weight: 106.58 kg

DRUGS (26)
  1. ZOMETA [Suspect]
     Indication: BREAST CANCER METASTATIC
     Dosage: 4 MG, QW4
     Dates: start: 20040818
  2. AMOXICILLIN [Concomitant]
  3. SINGULAIR [Concomitant]
  4. CLARINEX                                /USA/ [Concomitant]
  5. VENTOLIN [Concomitant]
  6. FEMARA [Concomitant]
     Dosage: 2.5 MG, QD
     Route: 048
     Dates: start: 20041001
  7. LETROZOLE [Concomitant]
  8. EXEMESTANE [Concomitant]
  9. MOBIC [Concomitant]
  10. IBUPROFEN [Concomitant]
     Dosage: 600 MG, PRN
  11. CELEBREX [Concomitant]
     Dosage: 200 MG, QD
     Route: 048
  12. ALBUTEROL [Concomitant]
     Dosage: 2 PUFFS, QID, PRN
  13. ZOLADEX [Concomitant]
     Dosage: 3.6 MG, UNK
  14. TAMOXIFEN CITRATE [Concomitant]
     Dosage: 10 MG, BID
     Route: 048
     Dates: start: 19981201, end: 20031201
  15. ZITHROMAX [Concomitant]
     Dosage: UNK
  16. METHYLPREDNISOLONE [Concomitant]
     Dosage: 4 MG, UNK
     Route: 048
  17. PROPOXYPHENE NAPSYLATE W/ ACETAMINOPHEN [Concomitant]
  18. RADIATION THERAPY [Concomitant]
  19. CHEMOTHERAPEUTICS NOS [Concomitant]
  20. BIAXIN [Concomitant]
     Dosage: 500 MG, BID
     Route: 048
  21. CALCIUM WITH VITAMIN D [Concomitant]
  22. CHLORHEXIDINE [Concomitant]
  23. AUGMENTIN '125' [Concomitant]
  24. PRILOSEC [Concomitant]
     Dosage: 40MG, EVERY DAY
     Route: 048
  25. PYRIDOXINE HCL [Concomitant]
     Dosage: 100MG, ONCE DAILY
     Route: 048
  26. XELODA [Concomitant]
     Dosage: UNK, 4 TABLETS EACH MORNING AND 3 TABLETS EVERY EVENING FOR 14 DAYS
     Route: 048
     Dates: start: 20100422

REACTIONS (39)
  - ABDOMINAL PAIN [None]
  - ANHEDONIA [None]
  - ANXIETY [None]
  - ARTHRALGIA [None]
  - ARTHRITIS [None]
  - BACK PAIN [None]
  - BALANCE DISORDER [None]
  - BLEPHARITIS [None]
  - BONE DENSITY DECREASED [None]
  - BONE DISORDER [None]
  - BONE SCAN ABNORMAL [None]
  - CHILLS [None]
  - DENTAL CARE [None]
  - DISABILITY [None]
  - DIZZINESS [None]
  - FALL [None]
  - GASTROINTESTINAL TOXICITY [None]
  - HOT FLUSH [None]
  - HYPOTENSION [None]
  - INJURY [None]
  - INTERVERTEBRAL DISC DEGENERATION [None]
  - MALIGNANT NEOPLASM PROGRESSION [None]
  - METASTASES TO BONE [None]
  - OSTEOMYELITIS [None]
  - OSTEONECROSIS OF JAW [None]
  - PAIN [None]
  - PAIN IN EXTREMITY [None]
  - PARAESTHESIA [None]
  - PELVIC PAIN [None]
  - PERIODONTAL DISEASE [None]
  - PHLEBITIS [None]
  - PILONIDAL CYST [None]
  - PYREXIA [None]
  - ROTATOR CUFF SYNDROME [None]
  - SALPINGO-OOPHORECTOMY BILATERAL [None]
  - SKIN TOXICITY [None]
  - THYROIDITIS [None]
  - VARICOSE VEIN [None]
  - VERTIGO [None]
